FAERS Safety Report 18112704 (Version 2)
Quarter: 2020Q3

REPORT INFORMATION
  Report Type: Spontaneous
  Country: US (occurrence: US)
  Receive Date: 20200805
  Receipt Date: 20200819
  Transmission Date: 20201103
  Serious: Yes (Life-Threatening, Hospitalization, Other)
  Sender: FDA-Public Use
  Company Number: US-AUROBINDO-AUR-APL-2020-037513

PATIENT
  Age: 17 Year
  Sex: Female
  Weight: 49.8 kg

DRUGS (13)
  1. CYCLOPHOSPHAMIDE. [Suspect]
     Active Substance: CYCLOPHOSPHAMIDE
     Indication: PINEALOBLASTOMA
     Dosage: UNK (3 CYCLE)
     Route: 065
  2. AMINOPHYLLINE. [Suspect]
     Active Substance: AMINOPHYLLINE
     Indication: PINEALOBLASTOMA
     Dosage: UNK, ONCE A DAY (125 MG (2.5 MG/KG), OVER 60 MIN)
     Route: 042
  3. THEOPHYLLINE [Suspect]
     Active Substance: THEOPHYLLINE ANHYDROUS
     Indication: PINEALOBLASTOMA
     Dosage: 18 MICROGRAM/MILLILITER
     Route: 065
  4. METHOTREXATE. [Suspect]
     Active Substance: METHOTREXATE
     Indication: PINEALOBLASTOMA
     Dosage: 8000 MILLIGRAM/SQ. METER, CYCLICAL  (CYCLE 1)
     Route: 065
  5. ETOPOSIDE. [Suspect]
     Active Substance: ETOPOSIDE
     Indication: PINEALOBLASTOMA
     Dosage: UNK UNK, CYCLICAL  (3 CYCLE)
     Route: 065
  6. CISPLATIN. [Suspect]
     Active Substance: CISPLATIN
     Indication: PINEALOBLASTOMA
     Dosage: UNK, CYCLICAL (3 CYCLE)
     Route: 065
  7. GLUCARPIDASE [Suspect]
     Active Substance: GLUCARPIDASE
     Indication: PRODUCT USED FOR UNKNOWN INDICATION
     Route: 042
  8. AMINOPHYLLINE. [Suspect]
     Active Substance: AMINOPHYLLINE
     Dosage: 25 MILLIGRAM/KILOGRAM, ONCE A DAY (MAXIMUN 150 MG)
     Route: 042
  9. METHOTREXATE. [Suspect]
     Active Substance: METHOTREXATE
     Dosage: 5000 MILLIGRAM/SQ. METER, CYCLICAL  (CYCLE 3)
     Route: 065
  10. METHOTREXATE. [Suspect]
     Active Substance: METHOTREXATE
     Dosage: 5000 MILLIGRAM/SQ. METER, CYCLICAL (CYCLE 2)
     Route: 065
  11. AMINOPHYLLINE. [Suspect]
     Active Substance: AMINOPHYLLINE
     Dosage: 100 MILLIGRAM, FOUR TIMES/DAY
     Route: 042
  12. DEXTROMETHORPHAN [Suspect]
     Active Substance: DEXTROMETHORPHAN
     Indication: PINEALOBLASTOMA
     Dosage: 60 MILLIGRAM, TWO TIMES A DAY
  13. LEUCOVORIN. [Suspect]
     Active Substance: LEUCOVORIN
     Indication: PINEALOBLASTOMA
     Dosage: 15 MILLIGRAM/SQ. METER, FOUR TIMES/DAY
     Route: 042

REACTIONS (7)
  - Dysphagia [Recovered/Resolved]
  - Neurotoxicity [Recovered/Resolved]
  - Toxic encephalopathy [Recovered/Resolved]
  - Dysarthria [Recovered/Resolved]
  - Tachycardia [Recovered/Resolved]
  - Encephalopathy [Recovered/Resolved]
  - Agitation [Recovered/Resolved]
